FAERS Safety Report 8359785-4 (Version None)
Quarter: 2012Q2

REPORT INFORMATION
  Report Type: 
  Country: None (occurrence: None)
  Receive Date: 20120515
  Receipt Date: 20120508
  Transmission Date: 20120825
  Serious: Yes (Hospitalization, Other)
  Sender: FDA-Public Use
  Company Number: PHHY2012BR040236

PATIENT
  Sex: Female

DRUGS (2)
  1. FORMOTEROL FUMARATE [Suspect]
     Dosage: UNK UKN, UNK
  2. CORTICOSTEROID NOS [Concomitant]
     Dosage: UNK UKN, UNK

REACTIONS (2)
  - MUSCULOSKELETAL DISCOMFORT [None]
  - MALAISE [None]
